FAERS Safety Report 6782327-1 (Version None)
Quarter: 2010Q2

REPORT INFORMATION
  Report Type: 
  Country: None (occurrence: None)
  Receive Date: 20100621
  Receipt Date: 20100607
  Transmission Date: 20101027
  Serious: Yes (Other)
  Sender: FDA-Public Use
  Company Number: DE-MYLANLABS-2010S1010132

PATIENT
  Age: 2 Year
  Sex: Male
  Weight: 16 kg

DRUGS (3)
  1. TAMSULOSIN DURA [Suspect]
     Indication: ACCIDENTAL EXPOSURE
     Route: 048
     Dates: start: 20100607, end: 20100607
  2. METOPROGAMMA /00376902/ [Suspect]
     Indication: ACCIDENTAL EXPOSURE
     Route: 048
     Dates: start: 20100607, end: 20100607
  3. BENAZEPLUS AL [Suspect]
     Indication: ACCIDENTAL EXPOSURE
     Route: 048
     Dates: start: 20100607, end: 20100607

REACTIONS (1)
  - ACCIDENTAL DRUG INTAKE BY CHILD [None]
